FAERS Safety Report 9176162 (Version 1)
Quarter: 2013Q1

REPORT INFORMATION
  Report Type: Spontaneous
  Country: MA (occurrence: MA)
  Receive Date: 20130321
  Receipt Date: 20130321
  Transmission Date: 20140127
  Serious: Yes (Other)
  Sender: FDA-Public Use
  Company Number: PHHY2013MA025391

PATIENT
  Age: 43 Year
  Sex: Female

DRUGS (8)
  1. METHYLPREDNISOLONE [Suspect]
     Indication: IMMUNOSUPPRESSION
     Dosage: 640 MG, FOR 3 DAYS
  2. PREDNISOLONE [Suspect]
     Indication: IMMUNOSUPPRESSION
     Dosage: 60 MG
  3. CYCLOPHOSPHAMIDE [Suspect]
     Indication: IMMUNOSUPPRESSION
     Dosage: 600 MG/MONTH
  4. DIURETICS [Concomitant]
  5. AMLODIPINE [Concomitant]
  6. D VITAMIINI [Concomitant]
  7. PROTON PUMP INHIBITORS [Concomitant]
  8. PERINDOPRIL [Concomitant]
     Dosage: 10 MG/DAY

REACTIONS (6)
  - Scleroderma renal crisis [Unknown]
  - Renal impairment [Unknown]
  - Haemolysis [Unknown]
  - Normochromic normocytic anaemia [Unknown]
  - Thrombocytopenia [Unknown]
  - Blood pressure increased [Unknown]
